FAERS Safety Report 13185050 (Version 2)
Quarter: 2017Q1

REPORT INFORMATION
  Report Type: Spontaneous
  Country: IT (occurrence: IT)
  Receive Date: 20170203
  Receipt Date: 20170215
  Transmission Date: 20170428
  Serious: Yes (Death, Other)
  Sender: FDA-Public Use
  Company Number: IT-ASTRAZENECA-2017SE11169

PATIENT
  Age: 30557 Day
  Sex: Female
  Weight: 93 kg

DRUGS (3)
  1. DICLOFENAC [Suspect]
     Active Substance: DICLOFENAC
     Indication: OSTEOARTHRITIS
     Dosage: DAILY
     Route: 048
  2. EPREX [Concomitant]
     Active Substance: ERYTHROPOIETIN
     Indication: CHRONIC KIDNEY DISEASE
     Dosage: 2000 IU/0.5 ML, 1 SYRINGE BUFFER PHOSPHATE
     Route: 058
     Dates: start: 20161106, end: 20161116
  3. ARIMIDEX [Suspect]
     Active Substance: ANASTROZOLE
     Indication: BREAST CANCER FEMALE
     Route: 048

REACTIONS (3)
  - Pancreatitis acute [Fatal]
  - Henoch-Schonlein purpura [Fatal]
  - Purpura [Unknown]

NARRATIVE: CASE EVENT DATE: 20161110
